FAERS Safety Report 10419152 (Version 1)
Quarter: 2014Q2

REPORT INFORMATION
  Report Type: Spontaneous
  Country: US (occurrence: None)
  Receive Date: 20140625
  Receipt Date: 20140625
  Transmission Date: 20141212
  Serious: No
  Sender: FDA-Public Use
  Company Number: A-NJ2014-96066

PATIENT
  Age: 59 Year
  Sex: Female

DRUGS (10)
  1. OPSUMIT (MACITENTAN) TABLET [Suspect]
     Indication: PULMONARY ARTERIAL HYPERTENSION
     Route: 048
     Dates: start: 20140204
  2. VELETRI (EPOPROSTENOL SODIUM) [Suspect]
     Indication: PULMONARY ARTERIAL HYPERTENSION
     Dosage: 25 MG/KG, PER MIN
     Route: 041
     Dates: start: 20111007
  3. COUMADIN (WARFARIN SODIUM) [Concomitant]
  4. ALDACTONE (SPIRONOLACTONE) [Concomitant]
  5. DIGOXIN [Concomitant]
  6. TOPROL (METOPROLOL SUCCINATE) [Concomitant]
  7. SYNTHROID (LEVOTHYROXINE SODIUM) [Concomitant]
  8. LASIX (FUROSEMIDE) [Concomitant]
  9. POTASSIUM [Concomitant]
  10. ZYRTEC (CETIRIZINE HYDROCHLORIDE) [Concomitant]

REACTIONS (6)
  - Nasal congestion [None]
  - Headache [None]
  - Nausea [None]
  - Flushing [None]
  - Rash macular [None]
  - Weight decreased [None]
